FAERS Safety Report 6319246-0 (Version None)
Quarter: 2009Q3

REPORT INFORMATION
  Report Type: 
  Country: None (occurrence: None)
  Receive Date: 20090821
  Receipt Date: 20081103
  Transmission Date: 20100115
  Serious: No
  Sender: FDA-Public Use
  Company Number: US-ABBOTT-08P-163-0471428-00

PATIENT
  Sex: Male
  Weight: 113.5 kg

DRUGS (6)
  1. NIASPAN [Suspect]
     Indication: HIGH DENSITY LIPOPROTEIN DECREASED
     Dosage: AT BEDTIME
     Route: 048
     Dates: start: 20080811
  2. NIASPAN [Suspect]
     Indication: LOW DENSITY LIPOPROTEIN INCREASED
  3. VALPROATE SODIUM [Concomitant]
     Indication: MIGRAINE
     Route: 048
  4. LABETALOL HYDROCHLORIDE [Concomitant]
     Indication: MIGRAINE
     Route: 048
  5. DILTIAZEM [Concomitant]
     Indication: DRUG USE FOR UNKNOWN INDICATION
  6. GENERIC TATZIA [Concomitant]
     Indication: BLOOD PRESSURE
     Route: 048

REACTIONS (1)
  - SOMNOLENCE [None]
